FAERS Safety Report 10532147 (Version 1)
Quarter: 2014Q4

REPORT INFORMATION
  Report Type: Spontaneous
  Country: IT (occurrence: IT)
  Receive Date: 20141021
  Receipt Date: 20141021
  Transmission Date: 20150529
  Serious: Yes (Other)
  Sender: FDA-Public Use
  Company Number: IT-TEVA-516773USA

PATIENT
  Sex: Female

DRUGS (4)
  1. WILZIN [Suspect]
     Active Substance: ZINC ACETATE
     Indication: HEPATO-LENTICULAR DEGENERATION
     Dosage: 150 MILLIGRAM DAILY;
     Route: 048
     Dates: start: 20060115, end: 20070201
  2. WILZIN [Suspect]
     Active Substance: ZINC ACETATE
     Dosage: 50 MILLIGRAM DAILY;
     Route: 048
     Dates: start: 20070202, end: 20070306
  3. WILZIN [Suspect]
     Active Substance: ZINC ACETATE
     Dosage: 50 MILLIGRAM DAILY;
     Route: 048
     Dates: start: 20070307
  4. DEURSIL [Concomitant]
     Active Substance: URSODIOL
     Dates: start: 200601, end: 200702

REACTIONS (7)
  - Haemorrhage [None]
  - Gastrointestinal oedema [None]
  - Chronic gastritis [Unknown]
  - Abdominal pain upper [Unknown]
  - Gastric ulcer [Unknown]
  - Vomiting [Unknown]
  - Nausea [Unknown]
